FAERS Safety Report 14216467 (Version 2)
Quarter: 2020Q3

REPORT INFORMATION
  Report Type: Spontaneous
  Country: CA (occurrence: CA)
  Receive Date: 20171122
  Receipt Date: 20200729
  Transmission Date: 20201102
  Serious: Yes (Other)
  Sender: FDA-Public Use
  Company Number: CA-BIOMARINAP-CA-2017-113995

PATIENT
  Age: 3 Year
  Sex: Male
  Weight: 15.9 kg

DRUGS (2)
  1. VIMIZIM [Suspect]
     Active Substance: ELOSULFASE ALFA
     Indication: MUCOPOLYSACCHARIDOSIS IV
     Dosage: 2 MG/KG, QW
     Route: 042
     Dates: start: 20160428
  2. ACETAMINOPHEN. [Concomitant]
     Active Substance: ACETAMINOPHEN
     Indication: PREMEDICATION
     Dosage: 160 MG, SINGLE

REACTIONS (15)
  - Deformity thorax [Unknown]
  - Lordosis [Unknown]
  - Musculoskeletal deformity [Unknown]
  - Incontinence [Not Recovered/Not Resolved]
  - Knee deformity [Not Recovered/Not Resolved]
  - Weight increased [Not Recovered/Not Resolved]
  - Pectus carinatum [Unknown]
  - Ankle deformity [Unknown]
  - Neck deformity [Unknown]
  - Cervical spinal stenosis [Unknown]
  - Kyphosis [Unknown]
  - Scoliosis [Unknown]
  - Spinal deformity [Unknown]
  - Asthenia [Unknown]
  - Short stature [Unknown]
